FAERS Safety Report 24055483 (Version 1)
Quarter: 2024Q3

REPORT INFORMATION
  Report Type: Spontaneous
  Country: JP (occurrence: JP)
  Receive Date: 20240705
  Receipt Date: 20240705
  Transmission Date: 20241017
  Serious: Yes (Other)
  Sender: BAYER
  Company Number: JP-BAYER-2024A095249

PATIENT
  Age: 76 Year
  Sex: Male

DRUGS (1)
  1. NUBEQA [Suspect]
     Active Substance: DAROLUTAMIDE
     Indication: Hormone-refractory prostate cancer
     Dosage: UNK
     Dates: start: 20220810, end: 20221102

REACTIONS (1)
  - Hormone-refractory prostate cancer [None]
